FAERS Safety Report 6975328-1 (Version None)
Quarter: 2010Q3

REPORT INFORMATION
  Report Type: 
  Country: None (occurrence: None)
  Receive Date: 20100910
  Receipt Date: 20090413
  Transmission Date: 20110219
  Serious: No
  Sender: FDA-Public Use
  Company Number: US-WYE-H08480009

PATIENT
  Age: 39 Year
  Sex: Female
  Weight: 59.02 kg

DRUGS (7)
  1. PRISTIQ [Suspect]
     Indication: DEPRESSION
     Route: 048
     Dates: start: 20080901, end: 20080901
  2. PROTONIX [Concomitant]
  3. GOODYS [Concomitant]
  4. LORCET-HD [Concomitant]
  5. KLONOPIN [Concomitant]
  6. PREVACID [Concomitant]
  7. CELEBREX [Concomitant]

REACTIONS (5)
  - AGGRESSION [None]
  - ANGER [None]
  - ANXIETY [None]
  - NERVOUSNESS [None]
  - SOCIAL AVOIDANT BEHAVIOUR [None]
